FAERS Safety Report 17913172 (Version 1)
Quarter: 2020Q2

REPORT INFORMATION
  Report Type: Report from Study
  Country: DE (occurrence: DE)
  Receive Date: 20200618
  Receipt Date: 20200618
  Transmission Date: 20200714
  Serious: Yes (Hospitalization, Other)
  Sender: FDA-Public Use
  Company Number: DE-MYLANLABS-2020M1056295

PATIENT
  Age: 69 Year
  Sex: Male
  Weight: 98 kg

DRUGS (8)
  1. FLUOROURACIL. [Suspect]
     Active Substance: FLUOROURACIL
     Indication: COLORECTAL CANCER METASTATIC
     Dosage: 4000 MILLIGRAM/SQ. METER, QW
     Route: 042
     Dates: start: 20160406, end: 20160427
  2. ERBITUX [Suspect]
     Active Substance: CETUXIMAB
     Dosage: 150 MILLIGRAM/SQ. METER
     Route: 042
     Dates: start: 20160706, end: 20160706
  3. IRINOTECAN [Suspect]
     Active Substance: IRINOTECAN
     Indication: COLORECTAL CANCER METASTATIC
     Dosage: 80 MILLIGRAM/SQ. METER, QW
     Route: 042
     Dates: start: 20160406, end: 20160427
  4. ERBITUX [Suspect]
     Active Substance: CETUXIMAB
     Dosage: 200 MILLIGRAM/SQ. METER
     Route: 042
     Dates: start: 20160420, end: 20160427
  5. ERBITUX [Suspect]
     Active Substance: CETUXIMAB
     Indication: COLORECTAL CANCER METASTATIC
     Dosage: 250 MILLIGRAM/SQ. METER
     Route: 042
     Dates: start: 20160413, end: 20160413
  6. ERBITUX [Suspect]
     Active Substance: CETUXIMAB
     Dosage: 400 MILLIGRAM/SQ. METER
     Route: 042
     Dates: start: 20160406, end: 20160406
  7. FOLINIC ACID [Suspect]
     Active Substance: LEUCOVORIN
     Indication: COLORECTAL CANCER METASTATIC
     Dosage: 500 MILLIGRAM/SQ. METER, QW
     Route: 042
     Dates: start: 20160406, end: 20160427
  8. ERBITUX [Suspect]
     Active Substance: CETUXIMAB
     Dosage: 100 MILLIGRAM/SQ. METER
     Route: 042
     Dates: start: 20160622

REACTIONS (5)
  - Anal haemorrhage [Recovered/Resolved]
  - Abdominal pain upper [Recovered/Resolved]
  - Diarrhoea [Recovered/Resolved]
  - Abdominal pain [Recovered/Resolved]
  - Sensation of foreign body [Recovered/Resolved]

NARRATIVE: CASE EVENT DATE: 20160504
